FAERS Safety Report 17898916 (Version 2)
Quarter: 2020Q3

REPORT INFORMATION
  Report Type: Spontaneous
  Country: FR (occurrence: FR)
  Receive Date: 20200615
  Receipt Date: 20200807
  Transmission Date: 20201103
  Serious: Yes (Other)
  Sender: FDA-Public Use
  Company Number: FR-GLAXOSMITHKLINE-FR2020097894

PATIENT
  Age: 40 Year
  Sex: Male

DRUGS (1)
  1. RELVAR ELLIPTA [Suspect]
     Active Substance: FLUTICASONE FUROATE\VILANTEROL TRIFENATATE
     Indication: COUGH
     Dosage: 1 UNK, QD, DOSE PER DAY

REACTIONS (3)
  - Product use in unapproved indication [Unknown]
  - Arrhythmia [Recovered/Resolved]
  - Off label use [Unknown]
